FAERS Safety Report 25957493 (Version 1)
Quarter: 2025Q4

REPORT INFORMATION
  Report Type: Spontaneous
  Country: US (occurrence: US)
  Receive Date: 20251024
  Receipt Date: 20251024
  Transmission Date: 20260118
  Serious: No
  Sender: PFIZER
  Company Number: US-BRISTOL-MYERS SQUIBB COMPANY-2025-144176

PATIENT
  Sex: Female

DRUGS (5)
  1. ELIQUIS [Suspect]
     Active Substance: APIXABAN
     Dosage: UNK
  2. DILTIAZEM HYDROCHLORIDE [Suspect]
     Active Substance: DILTIAZEM HYDROCHLORIDE
     Dosage: UNK
  3. ADEMPAS [Suspect]
     Active Substance: RIOCIGUAT
     Dosage: UNK
  4. AMBRISENTAN [Suspect]
     Active Substance: AMBRISENTAN
     Indication: Pulmonary hypertension
     Dosage: 10 MG, 1X/DAY
     Route: 048
     Dates: start: 20240613
  5. WINREVAIR [Suspect]
     Active Substance: SOTATERCEPT-CSRK
     Dosage: UNK

REACTIONS (1)
  - Epistaxis [Unknown]
